FAERS Safety Report 7604137-5 (Version None)
Quarter: 2011Q3

REPORT INFORMATION
  Report Type: 
  Country: None (occurrence: None)
  Receive Date: 20110711
  Receipt Date: 20110711
  Transmission Date: 20111222
  Serious: Yes (Death, Hospitalization)
  Sender: FDA-Public Use
  Company Number: None

PATIENT
  Age: 79 Year
  Sex: Female
  Weight: 74.4 kg

DRUGS (1)
  1. PRADAXA [Suspect]
     Indication: ATRIAL FIBRILLATION
     Dosage: 75MG BID PO
     Route: 048

REACTIONS (8)
  - CARDIAC TAMPONADE [None]
  - CARDIOGENIC SHOCK [None]
  - IATROGENIC INJURY [None]
  - ATRIAL FLUTTER [None]
  - RESPIRATORY FAILURE [None]
  - METABOLIC ACIDOSIS [None]
  - ANION GAP INCREASED [None]
  - PERICARDIAL HAEMORRHAGE [None]
